FAERS Safety Report 10259493 (Version 1)
Quarter: 2014Q2

REPORT INFORMATION
  Report Type: Spontaneous
  Country: US (occurrence: US)
  Receive Date: 20140625
  Receipt Date: 20140625
  Transmission Date: 20141212
  Serious: Yes (Other)
  Sender: FDA-Public Use
  Company Number: US-PFIZER INC-2014171877

PATIENT
  Age: 25 Year
  Sex: Female
  Weight: 72.56 kg

DRUGS (11)
  1. LYRICA [Suspect]
     Indication: NEUROPATHY PERIPHERAL
     Dosage: UNK
  2. LYRICA [Suspect]
     Dosage: 300 MG, 2X/DAY
  3. SEROQUEL [Concomitant]
     Dosage: 200 MG, DAILY
  4. OXYBUTYNIN [Concomitant]
     Dosage: 5 MG, 2X/DAY
  5. LORAZEPAM [Concomitant]
     Dosage: 0.5 MG, 2X/DAY
  6. WELLBUTRIN [Concomitant]
     Dosage: 150 MG, 2X/DAY
  7. AMITRIPTYLINE HYDROCHLORIDE [Concomitant]
     Dosage: 25 MG, DAILY
  8. KEPPRA [Concomitant]
     Dosage: 500 MG, 2X/DAY
  9. ADDERALL [Concomitant]
     Dosage: 5 MG, 2X/DAY
  10. FENTANYL [Concomitant]
     Indication: PAIN
     Dosage: UNK(ONE PATCH), EVERY 48 HOUR
  11. RITUXIMAB [Concomitant]
     Dosage: 1 G, 4X/YEAR

REACTIONS (3)
  - Neuromyelitis optica [Unknown]
  - Blindness [Unknown]
  - Optic nerve disorder [Unknown]
